FAERS Safety Report 5911849-8 (Version None)
Quarter: 2008Q4

REPORT INFORMATION
  Report Type: 
  Country: None (occurrence: None)
  Receive Date: 20081006
  Receipt Date: 20080924
  Transmission Date: 20090506
  Serious: Yes (Life-Threatening, Hospitalization)
  Sender: FDA-Public Use
  Company Number: ADE2008-0323

PATIENT
  Age: 56 Year
  Sex: Female

DRUGS (2)
  1. CITALOPRAM HYDROBROMIDE [Suspect]
     Dosage: 80MG PO
     Route: 048
  2. LITHIUM [Suspect]
     Dosage: PO
     Route: 048

REACTIONS (7)
  - BLOOD PRESSURE DIASTOLIC INCREASED [None]
  - BODY TEMPERATURE DECREASED [None]
  - DRUG TOXICITY [None]
  - PYREXIA [None]
  - RESPIRATORY DEPRESSION [None]
  - TACHYCARDIA [None]
  - UNRESPONSIVE TO STIMULI [None]
